FAERS Safety Report 23766414 (Version 2)
Quarter: 2024Q3

REPORT INFORMATION
  Report Type: Spontaneous
  Country: NO (occurrence: NO)
  Receive Date: 20240422
  Receipt Date: 20240725
  Transmission Date: 20241017
  Serious: Yes (Hospitalization, Disabling, Other)
  Sender: NOVO NORDISK
  Company Number: None

PATIENT
  Age: 49 Year
  Sex: Male
  Weight: 182 kg

DRUGS (6)
  1. XARELTO [Concomitant]
     Active Substance: RIVAROXABAN
     Indication: Atrial fibrillation
     Dosage: 20 MG, QD (20 X 1 CONTINUED USE OF MEDICINAL PRODUCT)
     Dates: start: 2014
  2. METOPROLOL SUCCINATE [Concomitant]
     Active Substance: METOPROLOL SUCCINATE
     Indication: Hypertension
     Dosage: 50 MG, QD(50 X 1 CONTINUED USE OF MEDICINAL PRODUCT)
     Dates: start: 2014
  3. METOPROLOL SUCCINATE [Concomitant]
     Active Substance: METOPROLOL SUCCINATE
     Indication: Atrial fibrillation
     Dosage: 75 MG
  4. TAMBOCOR [Concomitant]
     Active Substance: FLECAINIDE ACETATE
     Indication: Arrhythmia
     Dosage: 100 MG, QD(100 X 1 CONTINUED USE OF MEDICINAL PRODUCT)
  5. WEGOVY [Suspect]
     Active Substance: SEMAGLUTIDE
     Indication: Obesity
     Dosage: UNK (1 PER WEEK CONTINUED USE OF MEDICINAL PRODUCT)
     Route: 058
     Dates: start: 20230717
  6. WEGOVY [Suspect]
     Active Substance: SEMAGLUTIDE
     Indication: Overweight

REACTIONS (5)
  - Visual impairment [Unknown]
  - Tinnitus [Unknown]
  - Intracranial pressure increased [Unknown]
  - Optic ischaemic neuropathy [Not Recovered/Not Resolved]
  - Dizziness [Unknown]

NARRATIVE: CASE EVENT DATE: 20240329
